FAERS Safety Report 8155081-9 (Version None)
Quarter: 2012Q1

REPORT INFORMATION
  Report Type: 
  Country: None (occurrence: None)
  Receive Date: 20120221
  Receipt Date: 20120210
  Transmission Date: 20120608
  Serious: Yes (Other)
  Sender: FDA-Public Use
  Company Number: PHHY2012FR013227

PATIENT
  Age: 55 Year
  Sex: Male

DRUGS (3)
  1. MYCOPHENOLATE MOFETIL [Suspect]
     Indication: RENAL TRANSPLANT
     Dosage: 2 G, PER DAY
  2. CYCLOSPORINE [Suspect]
     Indication: RENAL TRANSPLANT
     Dosage: 210 MG, DAILY
  3. PREDNISOLONE [Suspect]
     Indication: RENAL TRANSPLANT
     Dosage: 5 MG, PER DAY

REACTIONS (11)
  - LYMPH NODE PAIN [None]
  - BACILLARY ANGIOMATOSIS [None]
  - PYREXIA [None]
  - HAEMORRHAGE [None]
  - INJURY [None]
  - COUGH [None]
  - HERPES ZOSTER [None]
  - NODULE [None]
  - LYMPHADENOPATHY [None]
  - WEIGHT DECREASED [None]
  - ASTHENIA [None]
